FAERS Safety Report 5418385-6 (Version None)
Quarter: 2007Q3

REPORT INFORMATION
  Report Type: 
  Country: None (occurrence: None)
  Receive Date: 20070718
  Receipt Date: 20070315
  Transmission Date: 20080115
  Serious: Yes (Hospitalization, Other)
  Sender: FDA-Public Use
  Company Number: 2006151276

PATIENT
  Age: 50 Year
  Sex: Female
  Weight: 77.6 kg

DRUGS (11)
  1. CELEBREX [Suspect]
     Indication: ARTHRITIS
     Dosage: 200 MG (200 MG, 1 IN 1 D);
     Dates: start: 20030801
  2. LIPITOR [Concomitant]
  3. METFORMIN HCL [Concomitant]
  4. SPIRONOLACTONE [Concomitant]
  5. PRILOSEC [Concomitant]
  6. MAGNESIUM OXIDE (MAGNESIUM OXIDE) [Concomitant]
  7. PAXIL [Concomitant]
  8. NEURONTIN [Concomitant]
  9. NORTRIPTYLINE HCL [Concomitant]
  10. INSULIN HUMULIN 70/30 (INSULIN HUMAN, INSULIN HUMAN INFECTION, ISOPHAN [Concomitant]
  11. MULTIVITAMIN [Concomitant]

REACTIONS (1)
  - MYOCARDIAL INFARCTION [None]
